FAERS Safety Report 6663520-5 (Version None)
Quarter: 2010Q1

REPORT INFORMATION
  Report Type: 
  Country: None (occurrence: None)
  Receive Date: 20100331
  Receipt Date: 20100331
  Transmission Date: 20100710
  Serious: Yes (Hospitalization, Other)
  Sender: FDA-Public Use
  Company Number: None

PATIENT
  Age: 68 Year
  Sex: Female
  Weight: 97.2 kg

DRUGS (15)
  1. SUNITINIB 50MG PFIZER [Suspect]
     Indication: RENAL CELL CARCINOMA
     Dosage: 50MG DAILY PO
     Route: 048
  2. MEGACE [Concomitant]
  3. METFORMIN [Concomitant]
  4. INSULIN [Concomitant]
  5. FUROSEMIDE [Concomitant]
  6. OXYCODONE [Concomitant]
  7. BENZONATATE [Concomitant]
  8. HYDROXYZINE [Concomitant]
  9. ESOMEPRAZOLE [Concomitant]
  10. TEMAZEPAM [Concomitant]
  11. AMITRIPTYLINE HCL [Concomitant]
  12. ASCORBIC ACID [Concomitant]
  13. FERROUS SULFATE TAB [Concomitant]
  14. OSCAL 500 + D [Concomitant]
  15. METOPROLOL TARTRATE [Concomitant]

REACTIONS (8)
  - ABDOMINAL PAIN [None]
  - BONE MARROW FAILURE [None]
  - DIARRHOEA [None]
  - HAEMATOCHEZIA [None]
  - HAEMORRHOIDS [None]
  - NO THERAPEUTIC RESPONSE [None]
  - ORAL PAIN [None]
  - THROMBOCYTOPENIC PURPURA [None]
